FAERS Safety Report 21262909 (Version 1)
Quarter: 2022Q3

REPORT INFORMATION
  Report Type: Spontaneous
  Country: BR (occurrence: None)
  Receive Date: 20220828
  Receipt Date: 20220828
  Transmission Date: 20221027
  Serious: Yes (Hospitalization, Other)
  Sender: FDA-Public Use
  Company Number: BR-ROCHE-2782226

PATIENT
  Age: 62 Year
  Sex: Female
  Weight: 71 kg

DRUGS (11)
  1. PERJETA [Suspect]
     Active Substance: PERTUZUMAB
     Indication: Breast cancer
     Route: 065
     Dates: start: 201612
  2. TRASTUZUMAB-DKST [Concomitant]
     Active Substance: TRASTUZUMAB-DKST
     Indication: Breast cancer
     Dates: start: 201612
  3. EXEMESTANE [Concomitant]
     Active Substance: EXEMESTANE
  4. DULOXETINE [Concomitant]
     Active Substance: DULOXETINE
  5. OSCAL D [Concomitant]
     Active Substance: CALCIUM CARBONATE\CHOLECALCIFEROL
  6. QUETIAPINE [Concomitant]
     Active Substance: QUETIAPINE
  7. PANTOPRAZOLE [Concomitant]
     Active Substance: PANTOPRAZOLE
  8. ROSUVASTATIN [Concomitant]
     Active Substance: ROSUVASTATIN
  9. CHOLECALCIFEROL [Concomitant]
     Active Substance: CHOLECALCIFEROL
  10. LOPERAMIDE [Concomitant]
     Active Substance: LOPERAMIDE
  11. SACCHAROMYCES CEREVISIAE [Concomitant]
     Active Substance: SACCHAROMYCES CEREVISIAE

REACTIONS (3)
  - Diarrhoea [Recovering/Resolving]
  - Gastritis erosive [Unknown]
  - Diverticulum intestinal [Unknown]

NARRATIVE: CASE EVENT DATE: 20210129
